FAERS Safety Report 23110750 (Version 1)
Quarter: 2023Q4

REPORT INFORMATION
  Report Type: Spontaneous
  Country: BY (occurrence: BY)
  Receive Date: 20231026
  Receipt Date: 20231026
  Transmission Date: 20240109
  Serious: Yes (Other)
  Sender: FDA-Public Use
  Company Number: BY-SUN PHARMACEUTICAL INDUSTRIES LTD-2023R1-414267

PATIENT
  Age: 59 Year
  Sex: Female

DRUGS (1)
  1. MESALAMINE [Suspect]
     Active Substance: MESALAMINE
     Indication: Product used for unknown indication
     Dosage: 800 MILLIGRAM, QID
     Route: 048

REACTIONS (4)
  - Diarrhoea haemorrhagic [Recovering/Resolving]
  - Drug ineffective [Unknown]
  - Abdominal discomfort [Recovering/Resolving]
  - Headache [Recovering/Resolving]
